FAERS Safety Report 20748648 (Version 1)
Quarter: 2022Q2

REPORT INFORMATION
  Report Type: Spontaneous
  Country: US (occurrence: US)
  Receive Date: 20220426
  Receipt Date: 20220426
  Transmission Date: 20220720
  Serious: Yes (Hospitalization)
  Sender: FDA-Public Use
  Company Number: US-PTx-2021000074

PATIENT
  Sex: Female
  Weight: 22.08 kg

DRUGS (2)
  1. LEUKINE [Suspect]
     Active Substance: SARGRAMOSTIM
     Indication: Thrombocytopenia
     Dosage: 450 MCG/INJ (1.8 ML) UNDER THE SKIN. ONCE DAILY ON DAYS 6-10 OF EACH?28 DAY CYCLE
     Route: 058
  2. STERILE WATER FOR INJECTION [Concomitant]
     Active Substance: WATER
     Indication: Product used for unknown indication
     Dosage: UNK
     Route: 065

REACTIONS (1)
  - Hospitalisation [Unknown]
